FAERS Safety Report 6237660-9 (Version None)
Quarter: 2009Q2

REPORT INFORMATION
  Report Type: 
  Country: None (occurrence: None)
  Receive Date: 20090616
  Receipt Date: 20090608
  Transmission Date: 20091009
  Serious: Yes (Other)
  Sender: FDA-Public Use
  Company Number: ZYD-09-AE-071

PATIENT
  Age: 54 Year
  Sex: Female

DRUGS (7)
  1. RIBAVIRIN [Suspect]
     Indication: HEPATITIS C
     Dosage: 1200MG, DAILY,
     Dates: start: 20090325
  2. PEG-INTERFERON (ROCHE) [Suspect]
     Indication: HEPATITIS C
     Dosage: 180MCG, WEEKLY,
     Dates: start: 20070101
  3. RIBAVIRIN [Suspect]
     Indication: HEPATITIS C
  4. LASIX [Concomitant]
  5. ANTIHYPERTENSIVE NOS [Concomitant]
  6. ZOLOFT [Concomitant]
  7. LUNESTA [Concomitant]

REACTIONS (4)
  - BACK PAIN [None]
  - DIZZINESS [None]
  - FEMUR FRACTURE [None]
  - GAIT DISTURBANCE [None]
